FAERS Safety Report 5841887-5 (Version None)
Quarter: 2008Q3

REPORT INFORMATION
  Report Type: 
  Country: None (occurrence: None)
  Receive Date: 20080811
  Receipt Date: 20080811
  Transmission Date: 20090109
  Serious: Yes (Other)
  Sender: FDA-Public Use
  Company Number: None

PATIENT
  Age: 65 Year
  Sex: Female
  Weight: 70.7611 kg

DRUGS (1)
  1. ADVAIR DISKUS 250/50 [Suspect]
     Indication: WHEEZING
     Dosage: ONE PUFF TWICE A DAY INHAL
     Route: 055
     Dates: start: 20080708, end: 20080728

REACTIONS (3)
  - CHEST DISCOMFORT [None]
  - DYSPHONIA [None]
  - PANIC ATTACK [None]
